FAERS Safety Report 5732669-3 (Version None)
Quarter: 2008Q2

REPORT INFORMATION
  Report Type: 
  Country: None (occurrence: None)
  Receive Date: 20080509
  Receipt Date: 20080424
  Transmission Date: 20081010
  Serious: Yes (Other)
  Sender: FDA-Public Use
  Company Number: US-BAYER-200811646BCC

PATIENT
  Age: 68 Year
  Sex: Male
  Weight: 89 kg

DRUGS (3)
  1. ALEVE (CAPLET) [Suspect]
     Indication: EXOSTOSIS
     Route: 048
     Dates: start: 20080201, end: 20080423
  2. LIPITOR [Concomitant]
  3. ATENOLOL [Concomitant]

REACTIONS (1)
  - HAEMATOCHEZIA [None]
